FAERS Safety Report 4766418-2 (Version None)
Quarter: 2005Q3

REPORT INFORMATION
  Report Type: 
  Country: None (occurrence: None)
  Receive Date: 20050909
  Receipt Date: 20050901
  Transmission Date: 20060218
  Serious: Yes (Hospitalization)
  Sender: FDA-Public Use
  Company Number: 2005123565

PATIENT
  Age: 82 Year
  Sex: Female

DRUGS (6)
  1. NEURONTIN [Suspect]
     Indication: ILL-DEFINED DISORDER
     Dosage: 2000 MG, ORAL
     Route: 048
     Dates: start: 20040701, end: 20040708
  2. AMITRIPTYLINE HYDROCHLORIDE [Concomitant]
  3. FUROSEMIDE [Concomitant]
  4. BROMAZEPAM (BROMAZEPAM) [Concomitant]
  5. CAPTOPRIL/HYDROCHLOROTHIAZIDE (CAPTOPRIL, HYDROCHLOROTHIAZIDE) [Concomitant]
  6. CITALOPRAM HYDROBROMIDE (CITALOPRAM) [Concomitant]

REACTIONS (2)
  - BLOOD CREATINE INCREASED [None]
  - BLOOD UREA INCREASED [None]
